FAERS Safety Report 4415875-X (Version None)
Quarter: 2004Q3

REPORT INFORMATION
  Report Type: 
  Country: None (occurrence: None)
  Receive Date: 20040805
  Receipt Date: 20040419
  Transmission Date: 20050211
  Serious: No
  Sender: FDA-Public Use
  Company Number: US-GLAXOSMITHKLINE-A0507581A

PATIENT
  Age: 66 Year
  Sex: Female

DRUGS (4)
  1. AVANDAMET [Suspect]
     Dosage: 1TAB TWICE PER DAY
     Route: 048
     Dates: start: 20031001
  2. PRAVACHOL [Suspect]
  3. COZAAR [Concomitant]
  4. LASIX [Concomitant]

REACTIONS (1)
  - MYALGIA [None]
